FAERS Safety Report 4955593-2 (Version None)
Quarter: 2006Q1

REPORT INFORMATION
  Report Type: 
  Country: None (occurrence: None)
  Receive Date: 20060328
  Receipt Date: 20051205
  Transmission Date: 20060701
  Serious: Yes (Hospitalization)
  Sender: FDA-Public Use
  Company Number: US-MERCK-0512USA00630

PATIENT
  Age: 64 Year
  Sex: Male
  Weight: 119 kg

DRUGS (12)
  1. VIOXX [Suspect]
     Indication: ARTHRITIS
     Route: 048
     Dates: start: 20010711, end: 20040101
  2. VIOXX [Suspect]
     Indication: PAIN
     Route: 048
     Dates: start: 20010711, end: 20040101
  3. VERAPAMIL [Concomitant]
     Indication: HYPERTENSION
     Route: 065
     Dates: start: 20010601, end: 20030701
  4. ACETAMINOPHEN AND PROPOXYPHENE HYDROCHLORIDE [Concomitant]
     Indication: PAIN
     Route: 065
     Dates: start: 20010601, end: 20030801
  5. LANOXIN [Concomitant]
     Indication: CARDIAC DISORDER
     Route: 065
     Dates: start: 20010601, end: 20030601
  6. PREVACID [Concomitant]
     Indication: HYPERCHLORHYDRIA
     Route: 065
  7. ZYPREXA [Concomitant]
     Indication: BIPOLAR DISORDER
     Route: 065
  8. PREDNISONE [Concomitant]
     Indication: PAIN
     Route: 065
     Dates: start: 20010601, end: 20030901
  9. GLYBURIDE [Concomitant]
     Indication: DIABETES MELLITUS
     Route: 065
  10. NEURONTIN [Concomitant]
     Indication: PAIN
     Route: 065
     Dates: start: 20010601, end: 20021101
  11. PROZAC [Concomitant]
     Indication: DEPRESSION
     Route: 065
  12. SONATA [Concomitant]
     Indication: INSOMNIA
     Route: 065

REACTIONS (4)
  - AMNESIA [None]
  - DIZZINESS [None]
  - INJURY [None]
  - MYOCARDIAL INFARCTION [None]
